FAERS Safety Report 21222623 (Version 1)
Quarter: 2022Q3

REPORT INFORMATION
  Report Type: Spontaneous
  Country: US (occurrence: US)
  Receive Date: 20220817
  Receipt Date: 20220817
  Transmission Date: 20221027
  Serious: Yes (Other)
  Sender: FDA-Public Use
  Company Number: US-GUERBET-US-20220073

PATIENT
  Age: 34 Year
  Sex: Female
  Weight: 78.5 kg

DRUGS (1)
  1. DOTAREM [Suspect]
     Active Substance: GADOTERATE MEGLUMINE
     Indication: Magnetic resonance imaging head
     Route: 042
     Dates: start: 20220715, end: 20220715

REACTIONS (8)
  - Pruritus [Recovered/Resolved]
  - Erythema [Unknown]
  - Influenza like illness [Not Recovered/Not Resolved]
  - Sinus disorder [Recovered/Resolved]
  - Bone pain [Unknown]
  - Arthralgia [Unknown]
  - Hyperaesthesia [Unknown]
  - Contrast media toxicity [Unknown]

NARRATIVE: CASE EVENT DATE: 20220715
